FAERS Safety Report 14456907 (Version 1)
Quarter: 2018Q1

REPORT INFORMATION
  Report Type: Spontaneous
  Country: CH (occurrence: FR)
  Receive Date: 20180130
  Receipt Date: 20180130
  Transmission Date: 20180509
  Serious: Yes (Other)
  Sender: FDA-Public Use
  Company Number: CH-AUROBINDO-AUR-APL-2018-003848

PATIENT
  Sex: Male

DRUGS (2)
  1. FINASTERIDE. [Suspect]
     Active Substance: FINASTERIDE
     Indication: ALOPECIA
     Dosage: ()
     Route: 048
  2. PROPECIA [Suspect]
     Active Substance: FINASTERIDE
     Indication: ALOPECIA
     Dosage: ()
     Route: 048

REACTIONS (6)
  - Libido decreased [Unknown]
  - Breast cancer [Unknown]
  - Mental disorder [Unknown]
  - Genital injury [Unknown]
  - Suicidal ideation [Unknown]
  - Depression [Unknown]
